FAERS Safety Report 6738255-0 (Version None)
Quarter: 2010Q2

REPORT INFORMATION
  Report Type: 
  Country: None (occurrence: None)
  Receive Date: 20100524
  Receipt Date: 20100518
  Transmission Date: 20101027
  Serious: Yes (Hospitalization)
  Sender: FDA-Public Use
  Company Number: A0842134A

PATIENT
  Sex: Female

DRUGS (6)
  1. LANOXIN [Suspect]
     Indication: DRUG USE FOR UNKNOWN INDICATION
     Route: 065
  2. LANOXIN [Suspect]
     Dates: end: 20080101
  3. WARFARIN SODIUM [Suspect]
     Indication: DRUG USE FOR UNKNOWN INDICATION
     Route: 065
  4. DIABETES MEDICATION [Suspect]
     Indication: DRUG USE FOR UNKNOWN INDICATION
     Route: 065
  5. INSULIN [Suspect]
     Indication: DRUG USE FOR UNKNOWN INDICATION
  6. HEART MEDICATION [Suspect]
     Indication: DRUG USE FOR UNKNOWN INDICATION

REACTIONS (3)
  - BLOOD GLUCOSE INCREASED [None]
  - DRUG EFFECT DECREASED [None]
  - DRUG INTERACTION [None]
